FAERS Safety Report 18716409 (Version 1)
Quarter: 2021Q1

REPORT INFORMATION
  Report Type: Spontaneous
  Country: US (occurrence: US)
  Receive Date: 20210107
  Receipt Date: 20210107
  Transmission Date: 20210419
  Serious: Yes (Disabling, Other)
  Sender: FDA-Public Use
  Company Number: None

PATIENT
  Age: 35 Year
  Sex: Male
  Weight: 94.5 kg

DRUGS (5)
  1. SIMPONI [Suspect]
     Active Substance: GOLIMUMAB
     Indication: ANKYLOSING SPONDYLITIS
  2. FLEXERIL [Concomitant]
     Active Substance: CYCLOBENZAPRINE HYDROCHLORIDE
  3. IBUPROFIN [Concomitant]
     Active Substance: IBUPROFEN
  4. METHOTREXATE. [Concomitant]
     Active Substance: METHOTREXATE
  5. SIMPONI [Concomitant]
     Active Substance: GOLIMUMAB

REACTIONS (3)
  - Product storage error [None]
  - Spinal cord compression [None]
  - Product distribution issue [None]

NARRATIVE: CASE EVENT DATE: 20210105
